FAERS Safety Report 11300633 (Version 2)
Quarter: 2015Q3

REPORT INFORMATION
  Report Type: Spontaneous
  Country: US (occurrence: None)
  Receive Date: 20150722
  Receipt Date: 20150814
  Transmission Date: 20151125
  Serious: Yes (Death, Hospitalization)
  Sender: FDA-Public Use
  Company Number: CO-LA-US-2015-012

PATIENT
  Age: 52 Year
  Sex: Female
  Weight: 118.8 kg

DRUGS (16)
  1. LISPRO INSULIN (INSULIN LISPRO) [Concomitant]
  2. GLUCAGON. [Concomitant]
     Active Substance: GLUCAGON
  3. DIGOXIN (UNKNOWN) (DIGOXIN) [Suspect]
     Active Substance: DIGOXIN
     Indication: PULMONARY ARTERIAL HYPERTENSION
  4. MAGNESIUM OXIDE. [Concomitant]
     Active Substance: MAGNESIUM OXIDE
  5. FLUTICASONE W/SALMETEROL (SALMETEROL, FLUTICASONE) [Concomitant]
  6. ACETAMINOPHEN (PARACETAMOL) [Concomitant]
     Active Substance: ACETAMINOPHEN
  7. ATORVASTATIN (ATORVASTATIN CALCIUM PROPYLENE GLYCOL SOLVATE) [Concomitant]
  8. HEPARIN [Concomitant]
     Active Substance: HEPARIN SODIUM
  9. NYSTATIN. [Concomitant]
     Active Substance: NYSTATIN
  10. ALBUTEROL SULFATE AND IPRATROPIUM BROMIDE (IPARTROPIUM BROMIDE, SALBUTAMOL SULFATE) [Concomitant]
  11. REMODULIN [Suspect]
     Active Substance: TREPROSTINIL
     Indication: PULMONARY ARTERIAL HYPERTENSION
     Route: 058
     Dates: start: 20150218, end: 20150621
  12. ASPIRIN (ACETYLSALICYLIC ACID) [Concomitant]
     Active Substance: ASPIRIN
  13. SPIRONOLACTONE. [Concomitant]
     Active Substance: SPIRONOLACTONE
  14. POTASSIUM -SODIUM PHOSPHATE (POTASSIUM PHOSPHATE DIBASOC, POTASSIUM PHOSPHATE MONOBASIC) [Concomitant]
  15. REVATIO (SILDENAFIL CITRATE) [Concomitant]
  16. DEXTROSE (GLUCOSE) [Concomitant]
     Active Substance: DEXTROSE

REACTIONS (20)
  - Asthenia [None]
  - Heart rate increased [None]
  - Fluid overload [None]
  - Pulmonary arterial hypertension [None]
  - Hypovolaemia [None]
  - Pollakiuria [None]
  - Respiratory failure [None]
  - Blood pressure increased [None]
  - Cardiac arrest [None]
  - Liver disorder [None]
  - Hyponatraemia [None]
  - Acute kidney injury [None]
  - Toxicity to various agents [None]
  - Chest discomfort [None]
  - Sinus tachycardia [None]
  - Thrombocytopenia [None]
  - Dyspnoea [None]
  - Pneumonia [None]
  - Electrocardiogram abnormal [None]
  - Pulmonary oedema [None]

NARRATIVE: CASE EVENT DATE: 20150621
